FAERS Safety Report 4699123-1 (Version None)
Quarter: 2005Q2

REPORT INFORMATION
  Report Type: 
  Country: None (occurrence: None)
  Receive Date: 20050624
  Receipt Date: 20050614
  Transmission Date: 20051028
  Serious: Yes (Other)
  Sender: FDA-Public Use
  Company Number: US-JNJFOC-20050604183

PATIENT
  Sex: Female
  Weight: 66.74 kg

DRUGS (4)
  1. ORTHO EVRA [Suspect]
     Indication: CONTRACEPTION
     Route: 062
  2. ASACOL [Concomitant]
     Indication: COLITIS
     Route: 049
  3. EFFEXOR [Concomitant]
     Indication: ANXIETY
     Route: 049
  4. LIPITOR [Concomitant]
     Route: 049

REACTIONS (3)
  - ABORTION SPONTANEOUS [None]
  - DRUG EXPOSURE DURING PREGNANCY [None]
  - UNINTENDED PREGNANCY [None]
